FAERS Safety Report 14154761 (Version 1)
Quarter: 2017Q4

REPORT INFORMATION
  Report Type: Spontaneous
  Country: US (occurrence: US)
  Receive Date: 20171102
  Receipt Date: 20171102
  Transmission Date: 20180321
  Serious: Yes (Other)
  Sender: FDA-Public Use
  Company Number: None

PATIENT
  Age: 64 Year
  Sex: Female

DRUGS (1)
  1. LIDOCAINE 1% WITH EPI 1:100,000 [Suspect]
     Active Substance: EPINEPHRINE\LIDOCAINE HYDROCHLORIDE
     Indication: SKIN OPERATION
     Dosage: ?          OTHER FREQUENCY:ONCE;?
     Route: 023
     Dates: start: 20171031

REACTIONS (2)
  - Anaesthetic complication [None]
  - Injection site pain [None]

NARRATIVE: CASE EVENT DATE: 20171031
